FAERS Safety Report 19693256 (Version 1)
Quarter: 2021Q3

REPORT INFORMATION
  Report Type: Spontaneous
  Country: TR (occurrence: TR)
  Receive Date: 20210812
  Receipt Date: 20210812
  Transmission Date: 20211014
  Serious: Yes (Hospitalization)
  Sender: FDA-Public Use
  Company Number: TR-TEVA-2021-TR-1942084

PATIENT
  Age: 19 Year
  Sex: Female

DRUGS (4)
  1. METHOTREXATE. [Suspect]
     Active Substance: METHOTREXATE
     Indication: OSTEOSARCOMA METASTATIC
     Dosage: 8 G/M2
     Route: 065
  2. FAVIPIRAVIR [Interacting]
     Active Substance: FAVIPIRAVIR
     Indication: COVID-19
     Dosage: 2 TIMES ON THE FIRST DAY OF TREATMENT; LOADING DOSE
     Route: 065
     Dates: start: 20210122
  3. FAVIPIRAVIR [Interacting]
     Active Substance: FAVIPIRAVIR
     Dosage: 2 TIMES ON THE SECOND DAY
     Route: 065
     Dates: start: 202101, end: 202101
  4. FOLINIC ACID [Concomitant]
     Active Substance: LEUCOVORIN
     Indication: CHEMOTHERAPY SIDE EFFECT PROPHYLAXIS
     Route: 065

REACTIONS (3)
  - Hepatitis toxic [Recovered/Resolved]
  - Drug-induced liver injury [Recovered/Resolved]
  - Drug interaction [Recovered/Resolved]

NARRATIVE: CASE EVENT DATE: 202101
